FAERS Safety Report 7397470-6 (Version None)
Quarter: 2011Q2

REPORT INFORMATION
  Report Type: 
  Country: None (occurrence: None)
  Receive Date: 20110406
  Receipt Date: 20110330
  Transmission Date: 20111010
  Serious: Yes (Hospitalization, Other)
  Sender: FDA-Public Use
  Company Number: PHHO2011CH04441

PATIENT
  Sex: Male

DRUGS (2)
  1. ASPIRIN [Concomitant]
  2. AFINITOR [Suspect]
     Indication: PROSTATE CANCER
     Dosage: 10 MG, QD
     Route: 048
     Dates: start: 20100707, end: 20110308

REACTIONS (3)
  - RETINAL DETACHMENT [None]
  - VITREOUS HAEMORRHAGE [None]
  - NEOPLASM MALIGNANT [None]
